FAERS Safety Report 16907156 (Version 1)
Quarter: 2019Q4

REPORT INFORMATION
  Report Type: Spontaneous
  Country: FR (occurrence: FR)
  Receive Date: 20191011
  Receipt Date: 20191011
  Transmission Date: 20200122
  Serious: Yes (Other)
  Sender: FDA-Public Use
  Company Number: FR-ACCORD-156967

PATIENT
  Age: 67 Year
  Sex: Male
  Weight: 90 kg

DRUGS (7)
  1. ACETYLSALICYLIC ACID [Concomitant]
     Active Substance: ASPIRIN
     Indication: CEREBROVASCULAR ACCIDENT
     Dosage: STRENGTH:75 MG 1-0-0
     Route: 048
     Dates: start: 2009
  2. PACLITAXEL ACCORD [Suspect]
     Active Substance: PACLITAXEL
     Indication: BRONCHIAL CARCINOMA
     Dosage: 150 MG/M 2 EVERY 3 WEEKS FOR THE FIRST 4 TREATMENT THEN 40 MG/M 2  OR 80?MG/TREATMENT
     Route: 042
     Dates: start: 20180917, end: 20190208
  3. LABETALOL HYDROCHLORIDE PAUCOURT [Concomitant]
     Indication: HYPERTENSION
     Dosage: 0-0-1
     Route: 048
     Dates: start: 2012, end: 20190626
  4. ADENURIC [Concomitant]
     Active Substance: FEBUXOSTAT
     Indication: HYPERURICAEMIA
     Dosage: STRENGTH:80 MG ,1-0-0
     Route: 048
     Dates: start: 2012
  5. CARBOPLATIN ACCORD [Suspect]
     Active Substance: CARBOPLATIN
     Indication: LUNG NEOPLASM MALIGNANT
     Dosage: AUC 4 IS 390 MG / TREATMENT EVERY 3 WEEKS FOR THE FIRST 4 TREATMENT THEN?AUC 2 IS ABOUT 176
     Route: 042
     Dates: start: 20180917, end: 20190208
  6. PRAVASTATIN. [Concomitant]
     Active Substance: PRAVASTATIN
     Indication: DYSLIPIDAEMIA
     Dosage: 0-0-1
     Route: 048
     Dates: start: 2018
  7. GLICLAZIDE [Concomitant]
     Active Substance: GLICLAZIDE
     Indication: DIABETES MELLITUS
     Dosage: 1-0-0
     Route: 048
     Dates: start: 2012, end: 20190718

REACTIONS (2)
  - Ejection fraction decreased [Not Recovered/Not Resolved]
  - Cardiac failure [Not Recovered/Not Resolved]

NARRATIVE: CASE EVENT DATE: 20190601
